FAERS Safety Report 5960207-9 (Version None)
Quarter: 2008Q4

REPORT INFORMATION
  Report Type: 
  Country: None (occurrence: None)
  Receive Date: 20081110
  Receipt Date: 20080918
  Transmission Date: 20090506
  Serious: No
  Sender: FDA-Public Use
  Company Number: 2008US002337

PATIENT
  Sex: Female

DRUGS (5)
  1. LEXISCAN [Suspect]
     Indication: SCAN MYOCARDIAL PERFUSION
     Dosage: IV BOLUS
     Route: 040
     Dates: start: 20080730, end: 20080730
  2. LEVOTHYROXINE SODIUM [Concomitant]
  3. AVAPRO [Concomitant]
  4. OMEPRAZOLE (OMEPRAZOLE SODIUM) [Concomitant]
  5. ATENOLOL [Concomitant]

REACTIONS (4)
  - ABDOMINAL PAIN UPPER [None]
  - MUSCULOSKELETAL DISCOMFORT [None]
  - NAUSEA [None]
  - PALLOR [None]
